FAERS Safety Report 10891320 (Version 3)
Quarter: 2015Q3

REPORT INFORMATION
  Report Type: Spontaneous
  Country: US (occurrence: US)
  Receive Date: 20150306
  Receipt Date: 20150819
  Transmission Date: 20151125
  Serious: Yes (Hospitalization, Other)
  Sender: FDA-Public Use
  Company Number: US-AMGEN-USASP2015020650

PATIENT
  Age: 76 Year
  Sex: Female

DRUGS (3)
  1. ENBREL [Suspect]
     Active Substance: ETANERCEPT
     Indication: PSORIATIC ARTHROPATHY
  2. ENBREL [Suspect]
     Active Substance: ETANERCEPT
     Indication: RHEUMATOID ARTHRITIS
     Dosage: 50 MG, QWK
     Route: 065
     Dates: start: 200408, end: 201504
  3. ENBREL [Suspect]
     Active Substance: ETANERCEPT
     Indication: PSORIASIS
     Dosage: UNK
     Route: 065

REACTIONS (14)
  - Bladder cancer [Recovered/Resolved]
  - Arthritis [Unknown]
  - Psoriasis [Unknown]
  - Haemorrhagic diathesis [Not Recovered/Not Resolved]
  - Eye disorder [Recovering/Resolving]
  - Dyspnoea [Not Recovered/Not Resolved]
  - Liver disorder [Unknown]
  - Gastrooesophageal reflux disease [Not Recovered/Not Resolved]
  - Blood cholesterol increased [Unknown]
  - Visual impairment [Recovering/Resolving]
  - Arthralgia [Not Recovered/Not Resolved]
  - Liver function test abnormal [Unknown]
  - Aortic occlusion [Recovering/Resolving]
  - Skin plaque [Unknown]

NARRATIVE: CASE EVENT DATE: 20140516
